FAERS Safety Report 8720055 (Version 4)
Quarter: 2012Q4

REPORT INFORMATION
  Report Type: 
  Country: US (occurrence: US)
  Receive Date: 20120813
  Receipt Date: 20121018
  Transmission Date: 20130627
  Serious: No
  Sender: FDA-Public Use
  Company Number: US-009507513-1208USA002230

PATIENT
  Sex: Female

DRUGS (3)
  1. NASONEX [Suspect]
     Indication: DYSPNOEA
     Dosage: 2 DF, qd
  2. NASONEX [Suspect]
     Dosage: 4 DF, qd
  3. NASONEX [Suspect]
     Dosage: UNK
     Dates: end: 2009

REACTIONS (2)
  - Epistaxis [Recovering/Resolving]
  - Device malfunction [Unknown]
